FAERS Safety Report 7710879-3 (Version None)
Quarter: 2011Q3

REPORT INFORMATION
  Report Type: 
  Country: None (occurrence: None)
  Receive Date: 20110825
  Receipt Date: 20110815
  Transmission Date: 20111222
  Serious: Yes (Hospitalization)
  Sender: FDA-Public Use
  Company Number: CA-GENENTECH-322468

PATIENT
  Sex: Male

DRUGS (17)
  1. ACRIVASTINE [Concomitant]
     Indication: PREMEDICATION
  2. ARAVA [Concomitant]
     Indication: RHEUMATOID ARTHRITIS
     Dosage: 20 MG, UNK
  3. CRESTOR [Concomitant]
     Indication: HYPERLIPIDAEMIA
  4. CALAMINE [Concomitant]
     Indication: PREMEDICATION
  5. SODIUM CITRATE [Concomitant]
     Indication: PREMEDICATION
  6. RITUXAN [Suspect]
     Dosage: UNK
     Route: 042
  7. METHYLPREDNISOLONE [Suspect]
     Indication: PREMEDICATION
     Dosage: 100 MG, UNK
     Route: 042
     Dates: start: 20110725, end: 20110725
  8. RITUXAN [Suspect]
     Indication: RHEUMATOID ARTHRITIS
     Dosage: 1000 MG, UNK
     Route: 042
     Dates: start: 20110725, end: 20110725
  9. CALCIVIT D [Concomitant]
     Indication: OSTEOPOROSIS PROPHYLAXIS
  10. AMMONIUM CHLORIDE [Concomitant]
     Indication: PREMEDICATION
  11. CODEINE SULFATE [Concomitant]
     Indication: PREMEDICATION
  12. PREDNISONE [Concomitant]
     Indication: RHEUMATOID ARTHRITIS
     Dosage: 5 MG, BID
     Route: 048
  13. ZINC [Concomitant]
     Indication: PREMEDICATION
  14. ACTONEL [Concomitant]
     Indication: OSTEOPOROSIS PROPHYLAXIS
  15. TYLENOL-500 [Concomitant]
     Indication: PREMEDICATION
     Dosage: 1000 MG, UNK
     Route: 048
  16. CAMPHOR + MENTHOL [Concomitant]
     Indication: PREMEDICATION
  17. BENADRYL (CANADA) [Concomitant]
     Indication: PREMEDICATION
     Dosage: 50 MG, UNK
     Route: 048

REACTIONS (2)
  - PANCREATITIS [None]
  - LOCALISED INFECTION [None]
